FAERS Safety Report 16270609 (Version 1)
Quarter: 2019Q2

REPORT INFORMATION
  Report Type: Spontaneous
  Country: US (occurrence: US)
  Receive Date: 20190503
  Receipt Date: 20190503
  Transmission Date: 20190711
  Serious: No
  Sender: FDA-Public Use
  Company Number: US-HERITAGE PHARMACEUTICALS-2018HTG00237

PATIENT
  Age: 43 Year
  Sex: Male
  Weight: 136.05 kg

DRUGS (12)
  1. VITAMIN B12 [Concomitant]
     Active Substance: CYANOCOBALAMIN
  2. DULOXETINE. [Concomitant]
     Active Substance: DULOXETINE
  3. ALDACTONE [Concomitant]
     Active Substance: SPIRONOLACTONE
  4. CALCITRATE [Concomitant]
     Active Substance: CALCIUM CITRATE
  5. GLUCOSAMINE [Concomitant]
     Active Substance: GLUCOSAMINE
  6. LIPITOR [Concomitant]
     Active Substance: ATORVASTATIN CALCIUM
  7. METOPROLOL. [Concomitant]
     Active Substance: METOPROLOL
  8. LEVOTHYROXINE. [Concomitant]
     Active Substance: LEVOTHYROXINE
  9. MELOXICAM. [Concomitant]
     Active Substance: MELOXICAM
  10. DOXYCYCLINE HYCLATE. [Suspect]
     Active Substance: DOXYCYCLINE HYCLATE
     Indication: BRONCHITIS
     Dosage: 100 MG, 2X/DAY
     Route: 048
     Dates: start: 20171101, end: 20171107
  11. OMEPRAZOLE. [Concomitant]
     Active Substance: OMEPRAZOLE
  12. POTASSIUM [Concomitant]
     Active Substance: POTASSIUM

REACTIONS (2)
  - Taste disorder [Not Recovered/Not Resolved]
  - Burning sensation mucosal [Not Recovered/Not Resolved]

NARRATIVE: CASE EVENT DATE: 20171107
